FAERS Safety Report 7538883-9 (Version None)
Quarter: 2011Q2

REPORT INFORMATION
  Report Type: 
  Country: None (occurrence: None)
  Receive Date: 20110524
  Receipt Date: 20110404
  Transmission Date: 20111010
  Serious: No
  Sender: FDA-Public Use
  Company Number: 030695

PATIENT
  Sex: Female
  Weight: 93 kg

DRUGS (10)
  1. CIMZIA [Suspect]
     Indication: RHEUMATOID ARTHRITIS
     Dosage: (SUBCUTANEOUS)
     Route: 058
     Dates: start: 20110319, end: 20110319
  2. LORTAB [Concomitant]
  3. VITAMIN B12 /00056201/ [Concomitant]
  4. CELEXA [Concomitant]
  5. ACTOS [Concomitant]
  6. VITAMIN D [Concomitant]
  7. FOLIC ACID [Concomitant]
  8. PREDNISONE [Concomitant]
  9. PRILOSEC [Concomitant]
  10. MULTI-VITAMINS [Concomitant]

REACTIONS (2)
  - ABSCESS LIMB [None]
  - LABYRINTHITIS [None]
